FAERS Safety Report 14133185 (Version 1)
Quarter: 2017Q4

REPORT INFORMATION
  Report Type: Spontaneous
  Country: US (occurrence: US)
  Receive Date: 20171026
  Receipt Date: 20171026
  Transmission Date: 20180321
  Serious: No
  Sender: FDA-Public Use
  Company Number: PHEH2017US034156

PATIENT
  Age: 85 Year
  Sex: Female

DRUGS (1)
  1. LATANOPROST. [Suspect]
     Active Substance: LATANOPROST
     Indication: GLAUCOMA
     Dosage: 1 GTT, QD (AT BEDTIME)
     Route: 047
     Dates: start: 201611

REACTIONS (7)
  - Abdominal pain [Recovered/Resolved]
  - Dyspnoea [Recovering/Resolving]
  - Feeling cold [Recovering/Resolving]
  - Muscle tightness [Recovered/Resolved]
  - Respiratory disorder [Recovering/Resolving]
  - Hypotension [Recovering/Resolving]
  - Rash [Recovered/Resolved]
